FAERS Safety Report 4308115-3 (Version None)
Quarter: 2004Q1

REPORT INFORMATION
  Report Type: 
  Country: None (occurrence: None)
  Receive Date: 20040301
  Receipt Date: 20030528
  Transmission Date: 20041129
  Serious: No
  Sender: FDA-Public Use
  Company Number: US-BRISTOL-MYERS SQUIBB COMPANY-12286316

PATIENT
  Age: 46 Year
  Sex: Female
  Weight: 122 kg

DRUGS (12)
  1. GLUCOPHAGE [Suspect]
     Indication: DIABETES MELLITUS
     Route: 048
  2. PROVIGIL [Interacting]
     Indication: SLEEP APNOEA SYNDROME
     Dosage: DOSE INCREASED FROM 200 TO 400 MG 3.5 HOURS BEFORE EVENT
     Route: 048
     Dates: start: 20030401
  3. WELLBUTRIN [Interacting]
     Indication: DEPRESSION
     Route: 048
  4. CELEXA [Interacting]
     Indication: DEPRESSION
     Route: 048
  5. AVANDIA [Interacting]
     Indication: DIABETES MELLITUS
  6. HUMALOG [Interacting]
     Indication: DIABETES MELLITUS
     Dosage: UNIT QAM/MD
     Route: 030
  7. HUMULIN R [Interacting]
     Indication: DIABETES MELLITUS
     Dosage: UNIT QAM/PM
     Route: 030
  8. NEURONTIN [Concomitant]
  9. VIOXX [Concomitant]
  10. PRILOSEC [Concomitant]
  11. LISINOPRIL [Concomitant]
  12. ALLEGRA [Concomitant]

REACTIONS (2)
  - BLOOD GLUCOSE DECREASED [None]
  - DRUG INTERACTION [None]
